FAERS Safety Report 10047819 (Version 4)
Quarter: 2014Q4

REPORT INFORMATION
  Report Type: Spontaneous
  Country: ES (occurrence: ES)
  Receive Date: 20140331
  Receipt Date: 20141201
  Transmission Date: 20150528
  Serious: Yes (Disabling)
  Sender: FDA-Public Use
  Company Number: ES-SA-2014SA037318

PATIENT
  Age: 70 Year
  Sex: Male
  Weight: 69 kg

DRUGS (10)
  1. 5-FU [Concomitant]
     Active Substance: FLUOROURACIL
     Dosage: 90% OF THE INTENDED DOSE
     Dates: start: 20140305, end: 20140305
  2. ZALTRAP [Suspect]
     Active Substance: ZIV-AFLIBERCEPT
     Indication: DISEASE PROGRESSION
     Route: 042
     Dates: start: 20140219, end: 20140219
  3. IRINOTECAN [Concomitant]
     Active Substance: IRINOTECAN
     Dosage: 90% OF THE INTENDED DOSE
     Dates: start: 20140219, end: 20140219
  4. 5-FU [Concomitant]
     Active Substance: FLUOROURACIL
     Dosage: 90% OF THE INTENDED DOSE
     Dates: start: 20140219, end: 20140219
  5. ALLOPURINOL. [Concomitant]
     Active Substance: ALLOPURINOL
     Indication: HYPERURICAEMIA
  6. OMEPRAZOLE. [Concomitant]
     Active Substance: OMEPRAZOLE
  7. LORAZEPAM. [Concomitant]
     Active Substance: LORAZEPAM
  8. ZALTRAP [Suspect]
     Active Substance: ZIV-AFLIBERCEPT
     Indication: DISEASE PROGRESSION
     Route: 042
     Dates: start: 20140305, end: 20140305
  9. IRINOTECAN [Concomitant]
     Active Substance: IRINOTECAN
     Dosage: 90% OF THE INTENDED DOSE
     Dates: start: 20140305, end: 20140305
  10. EMCONCOR /SPA/ [Concomitant]
     Indication: HYPERTENSION

REACTIONS (6)
  - Gingival pain [Not Recovered/Not Resolved]
  - Toothache [Recovering/Resolving]
  - Oral pain [Not Recovered/Not Resolved]
  - Pain in jaw [Not Recovered/Not Resolved]
  - Periodontal destruction [Recovering/Resolving]
  - Dysphonia [Recovering/Resolving]

NARRATIVE: CASE EVENT DATE: 20140222
